FAERS Safety Report 25968736 (Version 3)
Quarter: 2025Q4

REPORT INFORMATION
  Report Type: Spontaneous
  Country: CA (occurrence: CA)
  Receive Date: 20251028
  Receipt Date: 20251219
  Transmission Date: 20260118
  Serious: Yes (Death, Other)
  Sender: PFIZER
  Company Number: CA-PFIZER INC-202500212083

PATIENT
  Age: 86 Year
  Sex: Female

DRUGS (2)
  1. RUXIENCE [Suspect]
     Active Substance: RITUXIMAB-PVVR
     Indication: Rheumatoid arthritis
     Dosage: 1000 MG, FOR ONE DOSE
     Route: 042
     Dates: start: 20240826, end: 20240826
  2. RUXIENCE [Suspect]
     Active Substance: RITUXIMAB-PVVR
     Dosage: 1 DF, DOSAGE INFO UNKNOWN
     Route: 042
     Dates: start: 20250416, end: 20250416

REACTIONS (1)
  - Death [Fatal]

NARRATIVE: CASE EVENT DATE: 20250905
